FAERS Safety Report 7269608-2 (Version None)
Quarter: 2010Q4

REPORT INFORMATION
  Report Type: 
  Country: None (occurrence: None)
  Receive Date: 20101130
  Receipt Date: 20100105
  Transmission Date: 20110411
  Serious: Yes (Hospitalization)
  Sender: FDA-Public Use
  Company Number: 2010SP001325

PATIENT
  Age: 34 Year
  Sex: Female
  Weight: 53.978 kg

DRUGS (3)
  1. NUVARING [Suspect]
     Indication: CONTRACEPTION
     Dosage: 1 DF;VAG
     Route: 067
     Dates: start: 20090116, end: 20091001
  2. ZOFRAN [Concomitant]
  3. SINGULAIR [Concomitant]

REACTIONS (1)
  - PULMONARY EMBOLISM [None]
